FAERS Safety Report 9077053 (Version 1)
Quarter: 2013Q1

REPORT INFORMATION
  Report Type: Report from Study
  Country: US (occurrence: US)
  Receive Date: 20130130
  Receipt Date: 20130130
  Transmission Date: 20140127
  Serious: No
  Sender: FDA-Public Use
  Company Number: US-ABBOTT-12P-163-0951873-00

PATIENT
  Age: 59 None
  Sex: Female

DRUGS (1)
  1. HUMIRA 40 MG/0.8 ML PEN [Suspect]
     Indication: CROHN^S DISEASE
     Route: 058

REACTIONS (6)
  - Contusion [Unknown]
  - Contusion [Unknown]
  - Headache [Unknown]
  - Injection site bruising [Unknown]
  - Injection site erythema [Unknown]
  - Increased tendency to bruise [Unknown]
